FAERS Safety Report 9274466 (Version 1)
Quarter: 2013Q2

REPORT INFORMATION
  Report Type: Spontaneous
  Country: DE (occurrence: DE)
  Receive Date: 20130507
  Receipt Date: 20130507
  Transmission Date: 20140414
  Serious: Yes (Hospitalization)
  Sender: FDA-Public Use
  Company Number: DE-AMGEN-DEUSP2013031362

PATIENT
  Age: 82 Year
  Sex: Female

DRUGS (8)
  1. ENBREL [Suspect]
     Indication: RHEUMATOID ARTHRITIS
     Dosage: 50 MG, 1X WEEKLY
     Dates: start: 20130227, end: 20130418
  2. PROVAS                             /01319601/ [Concomitant]
     Dosage: UNK
  3. NEBIVOLOL [Concomitant]
     Dosage: UNK
  4. ASS [Concomitant]
     Dosage: UNK
  5. AMLODIPINE [Concomitant]
     Dosage: UNK
  6. SIMVASTATIN [Concomitant]
     Dosage: UNK AS NEEDED
  7. IBUPROFEN [Concomitant]
     Dosage: 800 UNK
  8. INDOMET                            /00003801/ [Concomitant]
     Dosage: SUPPOSITUM

REACTIONS (1)
  - Diverticulitis [Not Recovered/Not Resolved]
